FAERS Safety Report 5122659-6 (Version None)
Quarter: 2006Q4

REPORT INFORMATION
  Report Type: 
  Country: None (occurrence: None)
  Receive Date: 20061005
  Receipt Date: 20061005
  Transmission Date: 20070319
  Serious: Yes (Other)
  Sender: FDA-Public Use
  Company Number: None

PATIENT
  Age: 82 Year
  Sex: Male
  Weight: 79.3795 kg

DRUGS (2)
  1. ISOSORBIDE   30MG [Suspect]
     Indication: CORONARY ARTERY DISEASE
     Dosage: 1 PILL QD PO
     Route: 048
     Dates: start: 20060825, end: 20061002
  2. ISOSORBIDE   30MG [Suspect]
     Indication: MYOCARDIAL INFARCTION
     Dosage: 1 PILL QD PO
     Route: 048
     Dates: start: 20060825, end: 20061002

REACTIONS (1)
  - RASH [None]
